FAERS Safety Report 11532626 (Version 2)
Quarter: 2015Q4

REPORT INFORMATION
  Report Type: Spontaneous
  Country: NL (occurrence: NL)
  Receive Date: 20150921
  Receipt Date: 20151009
  Transmission Date: 20160304
  Serious: Yes (Other)
  Sender: FDA-Public Use
  Company Number: NL-TAKEDA-2015TUS012115

PATIENT
  Age: 46 Year
  Sex: Male
  Weight: 85 kg

DRUGS (5)
  1. HYDROCORTISONE. [Concomitant]
     Active Substance: HYDROCORTISONE
     Dosage: 200 MG, UNK
  2. TIOGUANINE [Concomitant]
     Active Substance: THIOGUANINE ANHYDROUS
     Dosage: 10 MG, QD
     Dates: start: 20141028, end: 20150701
  3. FLUCLOXACILLINE                    /00239101/ [Concomitant]
     Indication: SYNOVIAL CYST
     Dosage: 500 MG, QID
     Dates: start: 20150828
  4. ENTYVIO [Suspect]
     Active Substance: VEDOLIZUMAB
     Indication: CROHN^S DISEASE
     Dosage: 300 MG, UNK
     Route: 042
     Dates: start: 20150710, end: 20150825
  5. INFLIXIMAB [Concomitant]
     Active Substance: INFLIXIMAB
     Dosage: 400 MG, Q8WEEKS
     Dates: start: 20111012, end: 20150604

REACTIONS (4)
  - Headache [Recovered/Resolved]
  - Vision blurred [Recovered/Resolved]
  - Synovial rupture [Recovered/Resolved]
  - Dizziness [Recovered/Resolved]

NARRATIVE: CASE EVENT DATE: 20150825
